FAERS Safety Report 6201560-0 (Version None)
Quarter: 2009Q2

REPORT INFORMATION
  Report Type: 
  Country: None (occurrence: None)
  Receive Date: 20090526
  Receipt Date: 20090513
  Transmission Date: 20091009
  Serious: Yes (Other)
  Sender: FDA-Public Use
  Company Number: GR-AVENTIS-200915166GDDC

PATIENT
  Age: 72 Year
  Sex: Female

DRUGS (2)
  1. METRONIDAZOLE [Suspect]
     Dosage: DOSE: UNK
  2. CIPROFLOXACIN [Suspect]
     Dosage: DOSE: UNK

REACTIONS (2)
  - DRUG INTERACTION [None]
  - ELECTROCARDIOGRAM QT PROLONGED [None]
